FAERS Safety Report 8831430 (Version 2)
Quarter: 2012Q4

REPORT INFORMATION
  Report Type: 
  Country: US (occurrence: US)
  Receive Date: 20121009
  Receipt Date: 20121018
  Transmission Date: 20130627
  Serious: No
  Sender: FDA-Public Use
  Company Number: US-ASTRAZENECA-2012SE76320

PATIENT
  Age: 75 Year
  Sex: Female

DRUGS (1)
  1. SEROQUEL XR [Suspect]
     Indication: BIPOLAR DISORDER
     Route: 048

REACTIONS (8)
  - Depression [Unknown]
  - Impaired work ability [Unknown]
  - Fall [Unknown]
  - Adverse event [Unknown]
  - Malaise [Unknown]
  - Viral infection [Unknown]
  - Diarrhoea [Unknown]
  - Drug dose omission [Unknown]
